FAERS Safety Report 5856634-0 (Version None)
Quarter: 2008Q3

REPORT INFORMATION
  Report Type: 
  Country: None (occurrence: None)
  Receive Date: 20080822
  Receipt Date: 20080822
  Transmission Date: 20090109
  Serious: Yes (Other)
  Sender: FDA-Public Use
  Company Number: None

PATIENT
  Age: 51 Year
  Sex: Male
  Weight: 48.8978 kg

DRUGS (2)
  1. CEFTRIAXONE 1G [Suspect]
     Indication: DIARRHOEA
     Dosage: 1G IV
     Route: 042
     Dates: start: 20080814, end: 20080818
  2. CEFTRIAXONE 1G [Suspect]
     Indication: PNEUMONIA
     Dosage: 1G IV
     Route: 042
     Dates: start: 20080814, end: 20080818

REACTIONS (1)
  - THROMBOCYTOPENIA [None]
